FAERS Safety Report 12208144 (Version 1)
Quarter: 2016Q1

REPORT INFORMATION
  Report Type: Report from Study
  Country: ZA (occurrence: ZA)
  Receive Date: 20160324
  Receipt Date: 20160324
  Transmission Date: 20160526
  Serious: Yes (Life-Threatening, Hospitalization, Other)
  Sender: FDA-Public Use
  Company Number: ZA-ABBVIE-16P-143-1559505-00

PATIENT
  Age: 35 Year
  Sex: Female
  Weight: 73.4 kg

DRUGS (3)
  1. RITONAVIR. [Suspect]
     Active Substance: RITONAVIR
     Indication: HIV INFECTION
     Route: 048
     Dates: start: 20111206, end: 20160130
  2. ATAZANAVIR [Concomitant]
     Active Substance: ATAZANAVIR
     Indication: HIV INFECTION
     Route: 048
     Dates: start: 20111206, end: 20160130
  3. EMTRICITABINE W/TENOFOVIR [Concomitant]
     Active Substance: EMTRICITABINE\TENOFOVIR DISOPROXIL
     Indication: HIV INFECTION
     Route: 048
     Dates: start: 20111206, end: 20160130

REACTIONS (4)
  - Acute kidney injury [Unknown]
  - Septic shock [Unknown]
  - Dysentery [Recovering/Resolving]
  - Megacolon [Unknown]

NARRATIVE: CASE EVENT DATE: 20160126
